FAERS Safety Report 5285032-6 (Version None)
Quarter: 2007Q2

REPORT INFORMATION
  Report Type: 
  Country: None (occurrence: None)
  Receive Date: 20070403
  Receipt Date: 20070312
  Transmission Date: 20071010
  Serious: Yes (Disabling)
  Sender: FDA-Public Use
  Company Number: US-SANOFI-SYNTHELABO-A03200702352

PATIENT
  Sex: Female

DRUGS (6)
  1. LEVAQUIN [Concomitant]
     Dosage: UNK
     Route: 048
  2. SINGULAIR [Concomitant]
     Dosage: UNK
     Route: 048
  3. NEURONTIN [Concomitant]
     Dosage: UNK
     Route: 048
  4. XANAX XR [Concomitant]
     Dosage: UNK
     Route: 048
  5. LEVOTHYROXINE SODIUM [Concomitant]
     Dosage: UNK
     Route: 048
  6. AMBIEN [Suspect]
     Indication: INSOMNIA
     Route: 048
     Dates: start: 20040101

REACTIONS (7)
  - AMNESIA [None]
  - COORDINATION ABNORMAL [None]
  - EATING DISORDER [None]
  - MOTOR DYSFUNCTION [None]
  - NEUROPSYCHOLOGICAL TEST ABNORMAL [None]
  - SLEEP WALKING [None]
  - WEIGHT INCREASED [None]
